FAERS Safety Report 5818913-2 (Version None)
Quarter: 2008Q3

REPORT INFORMATION
  Report Type: 
  Country: None (occurrence: None)
  Receive Date: 20080721
  Receipt Date: 20080721
  Transmission Date: 20090109
  Serious: Yes (Hospitalization)
  Sender: FDA-Public Use
  Company Number: None

PATIENT
  Sex: Female
  Weight: 101 kg

DRUGS (2)
  1. CARBOPLATIN [Suspect]
     Dosage: 636 MG
     Dates: start: 20080306, end: 20080619
  2. TAXOL [Suspect]
     Dosage: 350 MG
     Dates: end: 20080619

REACTIONS (4)
  - ABSCESS LIMB [None]
  - FURUNCLE [None]
  - HAEMORRHAGE [None]
  - STAPHYLOCOCCAL ABSCESS [None]
